FAERS Safety Report 15884923 (Version 2)
Quarter: 2019Q2

REPORT INFORMATION
  Report Type: Spontaneous
  Country: US (occurrence: US)
  Receive Date: 20190129
  Receipt Date: 20190402
  Transmission Date: 20190711
  Serious: Yes (Other)
  Sender: FDA-Public Use
  Company Number: US-PFIZER INC-2019035522

PATIENT
  Age: 51 Year
  Sex: Female
  Weight: 77 kg

DRUGS (3)
  1. LYRICA [Suspect]
     Active Substance: PREGABALIN
     Dosage: 50 MG, UNK
     Dates: start: 2017
  2. LYRICA [Suspect]
     Active Substance: PREGABALIN
     Indication: NEUROPATHY PERIPHERAL
     Dosage: UNK (25 OR 50 MG)
  3. LYRICA [Suspect]
     Active Substance: PREGABALIN
     Dosage: 150 MG, 2X/DAY (100 CAPSULES AND 50 CAPSULES BY MOUTH TWICE A DAY)
     Route: 048

REACTIONS (3)
  - Neuropathy peripheral [Unknown]
  - Liver disorder [Recovering/Resolving]
  - Hernia [Recovered/Resolved]

NARRATIVE: CASE EVENT DATE: 201805
